FAERS Safety Report 12378191 (Version 1)
Quarter: 2016Q2

REPORT INFORMATION
  Report Type: Spontaneous
  Country: AU (occurrence: AU)
  Receive Date: 20160517
  Receipt Date: 20160517
  Transmission Date: 20160815
  Serious: Yes (Death, Other)
  Sender: FDA-Public Use
  Company Number: AU-BAYER-2016-059750

PATIENT
  Age: 78 Year
  Sex: Male

DRUGS (1)
  1. GADOVIST [Suspect]
     Active Substance: GADOBUTROL
     Indication: ENTEROCLYSIS
     Dosage: UNK UNK, ONCE
     Dates: start: 2016, end: 2016

REACTIONS (2)
  - Unresponsive to stimuli [None]
  - Death [Fatal]

NARRATIVE: CASE EVENT DATE: 20160128
